FAERS Safety Report 14145566 (Version 8)
Quarter: 2022Q1

REPORT INFORMATION
  Report Type: Spontaneous
  Country: GB (occurrence: GB)
  Receive Date: 20171031
  Receipt Date: 20220104
  Transmission Date: 20220423
  Serious: Yes (Life-Threatening, Hospitalization, Other)
  Sender: FDA-Public Use
  Company Number: GB-NOVPHSZ-PHHO2004GB019892

PATIENT
  Age: 66 Year
  Sex: Male
  Weight: 77.4 kg

DRUGS (6)
  1. DEXAMETHASONE [Suspect]
     Active Substance: DEXAMETHASONE
     Indication: Nausea
     Dosage: 2 MG, TID
     Route: 048
     Dates: start: 20040311, end: 20040314
  2. DICLOFENAC [Suspect]
     Active Substance: DICLOFENAC
     Indication: Pain
     Dosage: 50 MG, TID
     Route: 048
  3. DICLOFENAC [Suspect]
     Active Substance: DICLOFENAC
     Dosage: 50 MG, TID
     Route: 048
     Dates: start: 20040304, end: 20040413
  4. CISPLATIN [Suspect]
     Active Substance: CISPLATIN
     Indication: Squamous cell carcinoma of head and neck
     Dosage: 100 MG/M2, UNK
     Route: 042
     Dates: start: 20040311
  5. CISPLATIN [Suspect]
     Active Substance: CISPLATIN
     Route: 042
  6. TYKERB [Suspect]
     Active Substance: LAPATINIB DITOSYLATE
     Indication: Squamous cell carcinoma of head and neck
     Dosage: 500 MG, UNK
     Route: 048
     Dates: start: 20040304, end: 20040313

REACTIONS (3)
  - Haematemesis [Unknown]
  - Abdominal pain [Unknown]
  - Duodenal ulcer perforation [Recovered/Resolved]

NARRATIVE: CASE EVENT DATE: 20040314
